FAERS Safety Report 8059204-1 (Version None)
Quarter: 2012Q1

REPORT INFORMATION
  Report Type: 
  Country: None (occurrence: None)
  Receive Date: 20120120
  Receipt Date: 20120112
  Transmission Date: 20120608
  Serious: Yes (Other)
  Sender: FDA-Public Use
  Company Number: FR-VERTEX PHARMACEUTICALS INC.-000000000000000099

PATIENT
  Age: 61 Year
  Sex: Female

DRUGS (3)
  1. PEGINTERFERON ALFA-2A [Concomitant]
     Indication: HEPATITIS C
     Dates: start: 20110101, end: 20110101
  2. RIBAVIRINE [Concomitant]
     Indication: HEPATITIS C
     Dates: start: 20110101, end: 20110101
  3. TELAPREVIR [Suspect]
     Indication: HEPATITIS C
     Dosage: DOSAGE FORM: TABLET
     Route: 048
     Dates: start: 20110101, end: 20110101

REACTIONS (2)
  - RASH [None]
  - OFF LABEL USE [None]
